FAERS Safety Report 21441167 (Version 1)
Quarter: 2022Q4

REPORT INFORMATION
  Report Type: Spontaneous
  Country: US (occurrence: None)
  Receive Date: 20221010
  Receipt Date: 20221010
  Transmission Date: 20230113
  Serious: No
  Sender: FDA-Public Use
  Company Number: None

PATIENT
  Sex: Female

DRUGS (7)
  1. CAPECITABINE [Suspect]
     Active Substance: CAPECITABINE
     Indication: Oesophageal carcinoma
     Dosage: FREQUENCY : TWICE A DAY;?
     Route: 048
  2. AMLODIPINE [Concomitant]
     Active Substance: AMLODIPINE BESYLATE
  3. famotidine 20 mg tab [Concomitant]
  4. levothyroxine 25 mcg tab [Concomitant]
  5. lorazepam 1 mg tab [Concomitant]
  6. morphine 15 mg tab [Concomitant]
  7. oxycodone 5 mg tab [Concomitant]

REACTIONS (2)
  - Metastases to lung [None]
  - Metastases to central nervous system [None]
